FAERS Safety Report 14738016 (Version 2)
Quarter: 2018Q4

REPORT INFORMATION
  Report Type: Spontaneous
  Country: US (occurrence: US)
  Receive Date: 20180409
  Receipt Date: 20181218
  Transmission Date: 20190204
  Serious: Yes (Other)
  Sender: FDA-Public Use
  Company Number: US-TAKEDA-2018TUS008938

PATIENT

DRUGS (11)
  1. LISINOPRIL. [Concomitant]
     Active Substance: LISINOPRIL
     Indication: HYPERTENSION
     Dosage: UNK
     Dates: start: 20100303, end: 20100728
  2. LOSARTAN. [Concomitant]
     Active Substance: LOSARTAN
     Indication: HYPERTENSION
     Dosage: UNK
     Dates: start: 20111118, end: 20130927
  3. PROTONIX [Suspect]
     Active Substance: PANTOPRAZOLE SODIUM
     Indication: GASTROOESOPHAGEAL REFLUX DISEASE
     Dosage: 40 MG, QD
     Route: 048
     Dates: start: 20070910, end: 20140130
  4. PANTOPRAZOLE [Suspect]
     Active Substance: PANTOPRAZOLE
     Indication: GASTROOESOPHAGEAL REFLUX DISEASE
     Dosage: 40 MG, QD
     Route: 048
     Dates: start: 20100219, end: 20140130
  5. MULTIVITAMIN                       /00097801/ [Concomitant]
     Active Substance: VITAMINS
     Indication: ROUTINE HEALTH MAINTENANCE
     Dosage: UNK
     Dates: start: 20070925, end: 20130430
  6. LIPITOR [Concomitant]
     Active Substance: ATORVASTATIN CALCIUM
     Dosage: UNK
     Dates: start: 20071109, end: 20120327
  7. LEVAQUIN [Concomitant]
     Active Substance: LEVOFLOXACIN
     Indication: ANTIBIOTIC THERAPY
     Dosage: UNK
     Dates: start: 20100212
  8. AMITRIPTYLINE [Concomitant]
     Active Substance: AMITRIPTYLINE
     Indication: ANTIDEPRESSANT THERAPY
     Dosage: UNK
     Dates: start: 20070913
  9. AMOXICILLIN. [Concomitant]
     Active Substance: AMOXICILLIN
     Indication: ANTIBIOTIC THERAPY
     Dosage: UNK
     Dates: start: 20090911, end: 20130920
  10. HALOPERIDOL. [Concomitant]
     Active Substance: HALOPERIDOL
     Dosage: UNK
     Dates: start: 20080707, end: 20130205
  11. IBUPROFEN. [Concomitant]
     Active Substance: IBUPROFEN
     Indication: PAIN
     Dosage: UNK
     Dates: start: 20071024, end: 20130920

REACTIONS (1)
  - Acute kidney injury [Not Recovered/Not Resolved]

NARRATIVE: CASE EVENT DATE: 20140723
